FAERS Safety Report 22961143 (Version 2)
Quarter: 2023Q4

REPORT INFORMATION
  Report Type: Report from Study
  Country: CA (occurrence: CA)
  Receive Date: 20230920
  Receipt Date: 20231116
  Transmission Date: 20240110
  Serious: Yes (Other)
  Sender: FDA-Public Use
  Company Number: CA-GILEAD-2023-0643691

PATIENT
  Age: 64 Year
  Sex: Male

DRUGS (1)
  1. BICTEGRAVIR\EMTRICITABINE\TENOFOVIR ALAFENAMIDE [Suspect]
     Active Substance: BICTEGRAVIR\EMTRICITABINE\TENOFOVIR ALAFENAMIDE
     Indication: HIV infection
     Dosage: 1 DOSAGE FORM, QD (200/50/25 MG, TABLET)
     Route: 048

REACTIONS (6)
  - Pneumonia [Not Recovered/Not Resolved]
  - Bronchial disorder [Unknown]
  - Illness [Unknown]
  - Depression [Unknown]
  - General physical condition abnormal [Unknown]
  - Mental disorder [Unknown]

NARRATIVE: CASE EVENT DATE: 20230301
